FAERS Safety Report 10170709 (Version 1)
Quarter: 2014Q2

REPORT INFORMATION
  Report Type: Report from Study
  Country: US (occurrence: US)
  Receive Date: 20140514
  Receipt Date: 20140514
  Transmission Date: 20141212
  Serious: Yes (Other)
  Sender: FDA-Public Use
  Company Number: US-BIOGENIDEC-2014BI042924

PATIENT
  Age: 66 Year
  Sex: 0

DRUGS (1)
  1. TYSABRI [Suspect]
     Indication: MULTIPLE SCLEROSIS
     Route: 042
     Dates: start: 20140115, end: 20140221

REACTIONS (4)
  - Acute disseminated encephalomyelitis [Unknown]
  - Speech disorder [Unknown]
  - Confusional state [Not Recovered/Not Resolved]
  - Pyrexia [Recovered/Resolved]
